FAERS Safety Report 5960886-6 (Version None)
Quarter: 2008Q4

REPORT INFORMATION
  Report Type: 
  Country: None (occurrence: None)
  Receive Date: 20081118
  Receipt Date: 20081110
  Transmission Date: 20090506
  Serious: Yes (Death, Other)
  Sender: FDA-Public Use
  Company Number: 200811IM000321

PATIENT
  Age: 10 Year
  Sex: Male

DRUGS (9)
  1. ACTIMMUNE [Suspect]
     Indication: CHRONIC GRANULOMATOUS DISEASE
     Dosage: INTRAVENOUS
     Route: 042
  2. AMPHOTERICIN B [Suspect]
     Indication: ASPERGILLOSIS
  3. IMMUNE GLOBULIN INTRAVENOUS (HUMAN) [Suspect]
     Indication: ASPERGILLOSIS
     Dosage: INTRAVENOUS
     Route: 042
  4. LEUKOCYTE MASS [Suspect]
     Indication: ASPERGILLOSIS
     Dosage: INTRAVENOUS
     Route: 042
  5. PREDNISOLONE [Suspect]
     Indication: CHRONIC GRANULOMATOUS DISEASE
     Dosage: MODERATE DOSES
  6. ITRACONAZOLE [Concomitant]
  7. CO-TRIMOXAZOLE [Concomitant]
  8. REFAMPICIN [Concomitant]
  9. TRIMETHOPRIM [Concomitant]

REACTIONS (9)
  - ABDOMINAL PAIN [None]
  - BLOOD AMYLASE INCREASED [None]
  - CONDITION AGGRAVATED [None]
  - DIARRHOEA [None]
  - DRUG INEFFECTIVE [None]
  - MULTI-ORGAN FAILURE [None]
  - PROTEINURIA [None]
  - RENAL FAILURE [None]
  - VENOUS THROMBOSIS [None]
